FAERS Safety Report 22313104 (Version 1)
Quarter: 2023Q2

REPORT INFORMATION
  Report Type: Spontaneous
  Country: US (occurrence: US)
  Receive Date: 20230512
  Receipt Date: 20230512
  Transmission Date: 20230722
  Serious: No
  Sender: FDA-Public Use
  Company Number: US-STRIDES ARCOLAB LIMITED-2023SP001782

PATIENT
  Age: 42 Year
  Sex: Female

DRUGS (11)
  1. ITRACONAZOLE [Suspect]
     Active Substance: ITRACONAZOLE
     Indication: Histoplasmosis disseminated
     Dosage: UNK
     Route: 065
  2. ACYCLOVIR [Suspect]
     Active Substance: ACYCLOVIR
     Indication: Sepsis
     Dosage: UNK
     Route: 065
  3. ETOPOSIDE [Suspect]
     Active Substance: ETOPOSIDE
     Indication: Histoplasmosis disseminated
     Dosage: UNK
     Route: 065
  4. POSACONAZOLE [Suspect]
     Active Substance: POSACONAZOLE
     Indication: Histoplasmosis disseminated
     Dosage: UNK
     Route: 065
  5. INFLIXIMAB [Concomitant]
     Active Substance: INFLIXIMAB
     Indication: Ankylosing spondylitis
     Dosage: UNK
     Route: 065
  6. INFLIXIMAB [Concomitant]
     Active Substance: INFLIXIMAB
     Indication: Immunosuppressant drug therapy
  7. METHOTREXATE [Concomitant]
     Active Substance: METHOTREXATE
     Indication: Ankylosing spondylitis
     Dosage: UNK
     Route: 065
  8. METHOTREXATE [Concomitant]
     Active Substance: METHOTREXATE
     Indication: Immunosuppressant drug therapy
  9. PREDNISONE [Concomitant]
     Active Substance: PREDNISONE
     Indication: Ankylosing spondylitis
     Dosage: UNK
     Route: 065
  10. PREDNISONE [Concomitant]
     Active Substance: PREDNISONE
     Indication: Immunosuppressant drug therapy
  11. AMPHOTERICIN B [Concomitant]
     Active Substance: AMPHOTERICIN B
     Indication: Sepsis
     Dosage: UNK
     Route: 065

REACTIONS (2)
  - Gastrointestinal disorder [Unknown]
  - Off label use [Unknown]
